FAERS Safety Report 4399683-4 (Version None)
Quarter: 2004Q3

REPORT INFORMATION
  Report Type: 
  Country: None (occurrence: None)
  Receive Date: 20040713
  Receipt Date: 20040621
  Transmission Date: 20050211
  Serious: Yes (Other)
  Sender: FDA-Public Use
  Company Number: M04-INT-079

PATIENT
  Age: 80 Year
  Sex: Female

DRUGS (1)
  1. INTEGRILIN [Suspect]
     Indication: CORONARY ANGIOPLASTY

REACTIONS (4)
  - DISSEMINATED INTRAVASCULAR COAGULATION [None]
  - HYPOVOLAEMIC SHOCK [None]
  - RETROPERITONEAL HAEMATOMA [None]
  - THROMBOCYTOPENIA [None]
